FAERS Safety Report 13896445 (Version 1)
Quarter: 2017Q3

REPORT INFORMATION
  Report Type: Spontaneous
  Country: US (occurrence: US)
  Receive Date: 20170823
  Receipt Date: 20170823
  Transmission Date: 20171127
  Serious: No
  Sender: FDA-Public Use
  Company Number: US-APOTEX-2017AP016406

PATIENT
  Age: 18 Year
  Sex: Female

DRUGS (1)
  1. FLUOXETINE ORAL SOLUTION USP [Suspect]
     Active Substance: FLUOXETINE HYDROCHLORIDE
     Indication: DEPRESSION
     Dosage: 40 MG, PER DAY
     Route: 065

REACTIONS (9)
  - Food intolerance [Unknown]
  - Insomnia [Unknown]
  - Feeling jittery [Unknown]
  - Depression [Unknown]
  - Drug intolerance [Unknown]
  - Tachyphrenia [Unknown]
  - Drug interaction [Unknown]
  - Agitation [Unknown]
  - Nervousness [Unknown]
